FAERS Safety Report 16693363 (Version 2)
Quarter: 2019Q4

REPORT INFORMATION
  Report Type: Spontaneous
  Country: US (occurrence: US)
  Receive Date: 20190812
  Receipt Date: 20191201
  Transmission Date: 20200122
  Serious: Yes (Hospitalization)
  Sender: FDA-Public Use
  Company Number: US-VERTEX PHARMACEUTICALS-2019-007342

PATIENT
  Age: 13 Year
  Sex: Male

DRUGS (11)
  1. SYMDEKO [Suspect]
     Active Substance: IVACAFTOR\TEZACAFTOR
     Indication: CYSTIC FIBROSIS
     Dosage: TEZACAFTOR 100 MG, IVACAFTOR 150 MG QAM; IVACAFTOR 150 MG QPM
     Route: 048
     Dates: start: 20180627
  2. CYPROHEPTADINE. [Concomitant]
     Active Substance: CYPROHEPTADINE
  3. SODIUM CHLORIDE. [Concomitant]
     Active Substance: SODIUM CHLORIDE
  4. VITAMIN D3 [Concomitant]
     Active Substance: CHOLECALCIFEROL
  5. SYMBICORT [Concomitant]
     Active Substance: BUDESONIDE\FORMOTEROL FUMARATE DIHYDRATE
     Route: 055
  6. VENTOLIN [Concomitant]
     Active Substance: ALBUTEROL SULFATE
  7. ALBUTEROL [SALBUTAMOL] [Concomitant]
     Active Substance: ALBUTEROL
  8. PROAIR HFA [Concomitant]
     Active Substance: ALBUTEROL SULFATE
  9. PULMOZYME [Concomitant]
     Active Substance: DORNASE ALFA
  10. CREON [Concomitant]
     Active Substance: PANCRELIPASE AMYLASE\PANCRELIPASE LIPASE\PANCRELIPASE PROTEASE
     Dosage: 24000-76000-120000 UNIT DELAYED RELEASE CAPSULE
  11. ONDANSETRON [Concomitant]
     Active Substance: ONDANSETRON

REACTIONS (1)
  - Lymphadenitis [Unknown]

NARRATIVE: CASE EVENT DATE: 20190704
